FAERS Safety Report 5735400-0 (Version None)
Quarter: 2008Q2

REPORT INFORMATION
  Report Type: 
  Country: None (occurrence: None)
  Receive Date: 20080508
  Receipt Date: 20080508
  Transmission Date: 20081010
  Serious: Yes (Life-Threatening)
  Sender: FDA-Public Use
  Company Number: None

PATIENT
  Age: 57 Year

DRUGS (1)
  1. LANTUS INSULIN [Suspect]
     Dosage: 23UNITS

REACTIONS (1)
  - HYPOGLYCAEMIA [None]
